FAERS Safety Report 16959982 (Version 1)
Quarter: 2019Q4

REPORT INFORMATION
  Report Type: Spontaneous
  Country: US (occurrence: US)
  Receive Date: 20191025
  Receipt Date: 20191025
  Transmission Date: 20200122
  Serious: No
  Sender: FDA-Public Use
  Company Number: US-SUNOVION-2019SUN004335

PATIENT
  Age: 20 Year
  Sex: Female

DRUGS (2)
  1. LATUDA [Suspect]
     Active Substance: LURASIDONE HYDROCHLORIDE
     Indication: PSYCHOTIC DISORDER
     Dosage: 20 MG
     Route: 048
  2. PROZAC [Concomitant]
     Active Substance: FLUOXETINE HYDROCHLORIDE
     Dosage: 10 MG

REACTIONS (3)
  - Akathisia [Unknown]
  - Off label use [Unknown]
  - Product dose omission [Unknown]
